FAERS Safety Report 8902895 (Version 2)
Quarter: 2012Q4

REPORT INFORMATION
  Report Type: 
  Country: US (occurrence: US)
  Receive Date: 20121112
  Receipt Date: 20121227
  Transmission Date: 20130627
  Serious: Yes (Death, Hospitalization, Other)
  Sender: FDA-Public Use
  Company Number: US-BIOGENIDEC-2012BI050760

PATIENT
  Age: 61 Year
  Sex: Female

DRUGS (2)
  1. AVONEX [Suspect]
     Indication: MULTIPLE SCLEROSIS
     Route: 030
     Dates: start: 20020101, end: 20110201
  2. AVONEX [Suspect]
     Indication: MULTIPLE SCLEROSIS
     Route: 030
     Dates: start: 20110819, end: 20120228

REACTIONS (11)
  - Death [Fatal]
  - Rib fracture [Recovered/Resolved]
  - Muscle contusion [Recovered/Resolved]
  - Fall [Recovered/Resolved]
  - Central nervous system lesion [Unknown]
  - Dementia Alzheimer^s type [Unknown]
  - Transient ischaemic attack [Unknown]
  - Gait disturbance [Not Recovered/Not Resolved]
  - Bedridden [Not Recovered/Not Resolved]
  - Dehydration [Recovered/Resolved]
  - General physical health deterioration [Unknown]
